FAERS Safety Report 7052039-8 (Version None)
Quarter: 2010Q4

REPORT INFORMATION
  Report Type: 
  Country: None (occurrence: None)
  Receive Date: 20101019
  Receipt Date: 20101015
  Transmission Date: 20110411
  Serious: Yes (Other)
  Sender: FDA-Public Use
  Company Number: CHPA2010US16184

PATIENT
  Age: 81 Year
  Sex: Female
  Weight: 102.4 kg

DRUGS (2)
  1. VOLTAREN [Suspect]
     Indication: OSTEOARTHRITIS
     Dosage: UNK, QHS ON AND OFF
     Route: 061
     Dates: start: 20100701
  2. COUMADIN [Concomitant]

REACTIONS (5)
  - DEPRESSED MOOD [None]
  - DYSPNOEA [None]
  - INSOMNIA [None]
  - PNEUMONIA [None]
  - WRONG TECHNIQUE IN DRUG USAGE PROCESS [None]
